FAERS Safety Report 8184757-2 (Version None)
Quarter: 2012Q1

REPORT INFORMATION
  Report Type: 
  Country: None (occurrence: None)
  Receive Date: 20120305
  Receipt Date: 20120305
  Transmission Date: 20120608
  Serious: Yes (Other)
  Sender: FDA-Public Use
  Company Number: None

PATIENT
  Age: 47 Year
  Sex: Female
  Weight: 61.688 kg

DRUGS (1)
  1. CAPZASIN HP [Suspect]
     Indication: BACK PAIN
     Dosage: 0.1%
     Route: 061
     Dates: start: 20120303, end: 20120303

REACTIONS (2)
  - APPLICATION SITE BURN [None]
  - APPLICATION SITE ERYTHEMA [None]
